FAERS Safety Report 7864533-8 (Version None)
Quarter: 2011Q4

REPORT INFORMATION
  Report Type: 
  Country: None (occurrence: None)
  Receive Date: 20111028
  Receipt Date: 20111025
  Transmission Date: 20120403
  Serious: No
  Sender: FDA-Public Use
  Company Number: US-PFIZER INC-2011261389

PATIENT
  Sex: Female

DRUGS (3)
  1. PRISTIQ [Suspect]
     Dosage: 100 MG, 1X/DAY
  2. PRISTIQ [Suspect]
     Dosage: 200 MG, UNK
  3. AMBIEN [Suspect]
     Dosage: UNK

REACTIONS (1)
  - SEDATION [None]
